FAERS Safety Report 6712672-7 (Version None)
Quarter: 2010Q2

REPORT INFORMATION
  Report Type: 
  Country: None (occurrence: None)
  Receive Date: 20100505
  Receipt Date: 20100505
  Transmission Date: 20101027
  Serious: Yes (Other)
  Sender: FDA-Public Use
  Company Number: None

PATIENT
  Age: 65 Year
  Sex: Female
  Weight: 90.2658 kg

DRUGS (2)
  1. ALENDRONATE SODIUM [Suspect]
     Indication: OSTEOPOROSIS
     Dosage: 70 MG WEEKLY
     Dates: start: 20100408
  2. ALENDRONATE SODIUM [Suspect]
     Indication: OSTEOPOROSIS
     Dosage: 70 MG WEEKLY
     Dates: start: 20100415

REACTIONS (6)
  - DYSPEPSIA [None]
  - HEADACHE [None]
  - JOINT SWELLING [None]
  - NAUSEA [None]
  - OEDEMA PERIPHERAL [None]
  - STOMATITIS [None]
